FAERS Safety Report 12848337 (Version 1)
Quarter: 2016Q4

REPORT INFORMATION
  Report Type: Report from Study
  Country: KR (occurrence: KR)
  Receive Date: 20161014
  Receipt Date: 20161014
  Transmission Date: 20170207
  Serious: Yes (Hospitalization)
  Sender: FDA-Public Use
  Company Number: KR-ELI_LILLY_AND_COMPANY-KR201610002198

PATIENT
  Age: 54 Year
  Sex: Female
  Weight: 48 kg

DRUGS (9)
  1. LEUCOVORIN                         /00566701/ [Concomitant]
     Active Substance: LEUCOVORIN
     Indication: RECTAL CANCER
     Dosage: 284 MG, UNKNOWN
     Route: 042
     Dates: start: 20140814
  2. 5 FU [Concomitant]
     Active Substance: FLUOROURACIL
     Dosage: 3048 MG, UNKNOWN
     Route: 042
     Dates: start: 20140814
  3. 5 FU [Concomitant]
     Active Substance: FLUOROURACIL
     Indication: RECTAL CANCER
     Dosage: 568 MG, UNKNOWN
     Route: 040
     Dates: start: 20140814
  4. IRINOTECAN [Concomitant]
     Active Substance: IRINOTECAN
     Dosage: 205 MG, UNKNOWN
     Route: 042
  5. CETUXIMAB [Suspect]
     Active Substance: CETUXIMAB
     Indication: RECTAL CANCER
     Dosage: 568 MG, UNKNOWN
     Route: 042
     Dates: start: 20140814
  6. CETUXIMAB [Suspect]
     Active Substance: CETUXIMAB
     Dosage: 710 MG, UNKNOWN
  7. 5 FU [Concomitant]
     Active Substance: FLUOROURACIL
     Dosage: 455 MG, UNKNOWN
     Route: 040
  8. IRINOTECAN [Concomitant]
     Active Substance: IRINOTECAN
     Indication: RECTAL CANCER
     Dosage: 256 MG, UNKNOWN
     Route: 042
     Dates: start: 20140814
  9. 5 FU [Concomitant]
     Active Substance: FLUOROURACIL
     Dosage: 2726 MG, UNKNOWN
     Route: 042

REACTIONS (1)
  - Deep vein thrombosis [Recovered/Resolved]

NARRATIVE: CASE EVENT DATE: 20150120
